FAERS Safety Report 4587272-8 (Version None)
Quarter: 2005Q1

REPORT INFORMATION
  Report Type: 
  Country: None (occurrence: None)
  Receive Date: 20050215
  Receipt Date: 20050202
  Transmission Date: 20050727
  Serious: Yes (Other)
  Sender: FDA-Public Use
  Company Number: 2005024687

PATIENT
  Age: 34 Year
  Sex: Female
  Weight: 62 kg

DRUGS (9)
  1. VIRACEPT [Suspect]
     Indication: HIV TEST POSITIVE
     Dosage: ORAL
     Route: 048
     Dates: start: 20040420, end: 20041011
  2. EFAVIRENZ (EFAVIRENZ) [Suspect]
     Indication: HIV TEST POSITIVE
     Dates: start: 20041011
  3. LOPINAVIR [Suspect]
     Indication: HIV TEST POSITIVE
     Dosage: 133 MG
     Dates: start: 19961201
  4. RITONAVIR [Suspect]
     Indication: HIV TEST POSITIVE
     Dosage: 33 MG
     Dates: start: 20000101
  5. ZIDOVUDINE [Suspect]
     Indication: HIV TEST POSITIVE
     Dates: start: 19960801, end: 20041011
  6. LAMIVUDINE [Suspect]
     Indication: HIV TEST POSITIVE
     Dates: start: 19961201, end: 20041011
  7. SAQUINAVIR [Concomitant]
  8. ENFUVIRTIDE (ENFUVIRTIDE) [Concomitant]
  9. STAVUDINE [Concomitant]

REACTIONS (2)
  - CAESAREAN SECTION [None]
  - DRUG EXPOSURE DURING PREGNANCY [None]
